FAERS Safety Report 12104092 (Version 2)
Quarter: 2016Q1

REPORT INFORMATION
  Report Type: Spontaneous
  Country: US (occurrence: US)
  Receive Date: 20160223
  Receipt Date: 20160307
  Transmission Date: 20160526
  Serious: Yes (Other)
  Sender: FDA-Public Use
  Company Number: US-ACCORD-037981

PATIENT

DRUGS (1)
  1. AMITRIPTYLINE ACCORD [Suspect]
     Active Substance: AMITRIPTYLINE
     Indication: PRODUCT USED FOR UNKNOWN INDICATION
     Dates: end: 20160214

REACTIONS (5)
  - Erythema [Recovered/Resolved]
  - Alopecia [Recovered/Resolved]
  - Product substitution issue [Unknown]
  - Pruritus [Recovered/Resolved]
  - Pain [Recovered/Resolved]
